FAERS Safety Report 7968920-9 (Version None)
Quarter: 2011Q4

REPORT INFORMATION
  Report Type: 
  Country: None (occurrence: None)
  Receive Date: 20111209
  Receipt Date: 20111206
  Transmission Date: 20120403
  Serious: Yes (Life-Threatening, Hospitalization)
  Sender: FDA-Public Use
  Company Number: NL-BAYER-2011-098495

PATIENT
  Age: 81 Year
  Sex: Female

DRUGS (1)
  1. GADOVIST 1,0 MMOL/ML [Suspect]
     Indication: ANGIOGRAM
     Dosage: 15 ML, ONCE
     Route: 042
     Dates: start: 20111006, end: 20111006

REACTIONS (4)
  - ANAPHYLACTIC SHOCK [None]
  - MALAISE [None]
  - UNEVALUABLE EVENT [None]
  - ACUTE RESPIRATORY DISTRESS SYNDROME [None]
